FAERS Safety Report 25028373 (Version 2)
Quarter: 2025Q3

REPORT INFORMATION
  Report Type: Report from Study
  Country: IN (occurrence: IN)
  Receive Date: 20250301
  Receipt Date: 20250725
  Transmission Date: 20251021
  Serious: Yes (Death)
  Sender: ROCHE
  Company Number: IN-ROCHE-10000159203

PATIENT
  Age: 43 Year
  Sex: Female

DRUGS (1)
  1. TECENTRIQ [Suspect]
     Active Substance: ATEZOLIZUMAB
     Indication: Gallbladder cancer metastatic
     Route: 042
     Dates: start: 20241128

REACTIONS (5)
  - Hypotension [Unknown]
  - Off label use [Unknown]
  - Death [Fatal]
  - Blood pressure decreased [Unknown]
  - Malaise [Unknown]
